FAERS Safety Report 12690303 (Version 2)
Quarter: 2016Q3

REPORT INFORMATION
  Report Type: Spontaneous
  Country: US (occurrence: US)
  Receive Date: 20160826
  Receipt Date: 20160909
  Transmission Date: 20161109
  Serious: Yes (Other)
  Sender: FDA-Public Use
  Company Number: US-SHIRE-US201610890

PATIENT
  Sex: Male
  Weight: 21.77 kg

DRUGS (1)
  1. ELAPRASE [Suspect]
     Active Substance: IDURSULFASE
     Indication: MUCOPOLYSACCHARIDOSIS II
     Dosage: 12 MG (2 VIALS), 1X/WEEK
     Route: 041
     Dates: start: 20110322

REACTIONS (7)
  - Agitation [Unknown]
  - Tremor [Unknown]
  - Infusion related reaction [Unknown]
  - Erythema [Unknown]
  - Generalised tonic-clonic seizure [Unknown]
  - Condition aggravated [Unknown]
  - Muscle twitching [Unknown]
